FAERS Safety Report 9538994 (Version 3)
Quarter: 2014Q1

REPORT INFORMATION
  Report Type: Report from Study
  Country: US (occurrence: US)
  Receive Date: 20130920
  Receipt Date: 20140106
  Transmission Date: 20141002
  Serious: Yes (Hospitalization, Other)
  Sender: FDA-Public Use
  Company Number: PHEH2013US008082

PATIENT
  Age: 71 Year
  Sex: Male
  Weight: 76.2 kg

DRUGS (29)
  1. GLEEVEC [Suspect]
     Indication: CHRONIC MYELOID LEUKAEMIA (IN REMISSION)
     Dosage: 400 MG, DAILY
     Route: 048
     Dates: start: 200609
  2. GLEEVEC [Suspect]
     Dosage: 400 MG, DAILY
     Route: 048
     Dates: start: 20100929, end: 20120416
  3. GLEEVEC [Suspect]
     Dosage: UNK UKN, UNK
     Route: 048
     Dates: end: 201206
  4. SPRYCEL//DASATINIB [Suspect]
     Indication: CHRONIC MYELOID LEUKAEMIA
     Dosage: 1 DF (100 MG), DAILY
     Route: 048
  5. SPRYCEL//DASATINIB [Suspect]
     Dosage: UNK UKN, UNK
     Dates: start: 20130328
  6. PENICILLIN /02215301/ [Suspect]
     Dosage: UNK UKN, UNK
  7. SULFA /02882301/ [Suspect]
     Dosage: UNK UKN, UNK
  8. BOSUTINIB [Suspect]
     Indication: CHRONIC MYELOID LEUKAEMIA
     Dosage: 1 DF (500 MG), DAILY WITH BREAKFAST
     Route: 048
  9. LISINOPRIL [Concomitant]
     Dosage: UNK UKN, UNK
  10. ASPIRIN [Concomitant]
     Dosage: 1 DF (81 MG), DAILY
     Route: 048
  11. VIT B COMPLEX [Concomitant]
     Dosage: TAKE BY MOUTH DAILY
     Route: 048
  12. BUMEX [Concomitant]
     Dosage: 1 DF (1 MG), BID
     Route: 048
  13. PRADAXA [Concomitant]
     Dosage: 1 DF (150 MG), DAILY
     Route: 048
  14. LANOXIN [Concomitant]
     Dosage: 125 UG, DAILY
     Route: 048
  15. LOPID [Concomitant]
     Dosage: 1 DF (600 MG), BID
     Route: 048
  16. VICODIN [Concomitant]
     Dosage: 1 DF (750 MG), DAILY
     Route: 048
  17. TOPROL XL [Concomitant]
     Dosage: 1 DF (50 MG), DAILY
     Route: 048
  18. FISH OIL [Concomitant]
     Dosage: 1 DF (1000 MG), BID
     Route: 048
  19. PAXIL//PAROXETINE HYDROCHLORIDE [Concomitant]
     Dosage: 1 DF (40 MG), BID
     Route: 048
  20. K-DUR [Concomitant]
     Dosage: 1 DF (20 MEQ), DAILY
     Route: 048
  21. CRESTOR [Concomitant]
     Dosage: 1 DF (10 MG), DAILY
     Route: 048
  22. VESICARE [Concomitant]
     Dosage: 2 DF (5 MG), DAILY
     Route: 048
  23. FLOMAX ^BOEHRINGER INGELHEIM^ [Concomitant]
     Dosage: 1 DF (0.4 MG), DAILY
     Route: 048
  24. FLEXERIL [Concomitant]
     Dosage: 1 DF (5 MG), DAILY
     Route: 048
  25. LASIX [Concomitant]
     Dosage: 1 DF (40 MG), DAILY
     Route: 048
  26. NEURONTIN [Concomitant]
     Dosage: 1 DF (600 MG), FOUR TIMES DAILY
     Route: 048
  27. PRILOSEC [Concomitant]
     Dosage: 1 DF (20 MG), DAILY
     Route: 048
  28. TORADOL [Concomitant]
     Dosage: 10 MG,EVERY 06 HOURS AS NEEDED
     Route: 048
  29. ZANTAC [Concomitant]
     Dosage: TAKE BY MOUTH TWICE DAILY

REACTIONS (24)
  - Pleural effusion [Unknown]
  - Dyspnoea [Unknown]
  - Drug hypersensitivity [Unknown]
  - Angioedema [Recovered/Resolved]
  - Pharyngeal oedema [Recovered/Resolved]
  - Oedema mouth [Recovered/Resolved]
  - Deep vein thrombosis [Unknown]
  - Urticaria [Unknown]
  - Fall [Unknown]
  - Diarrhoea [Recovering/Resolving]
  - Periorbital oedema [Unknown]
  - Oedema peripheral [Unknown]
  - Muscle spasms [Recovered/Resolved]
  - Haematoma [Unknown]
  - Drug ineffective [Unknown]
  - Essential hypertension [Unknown]
  - Depression [Unknown]
  - Gastrooesophageal reflux disease [Unknown]
  - Abdominal pain [Unknown]
  - Weight decreased [Unknown]
  - Decreased appetite [Unknown]
  - Eyelid oedema [Unknown]
  - Pyrexia [Unknown]
  - Swelling [Unknown]
